FAERS Safety Report 6301268-7 (Version None)
Quarter: 2009Q3

REPORT INFORMATION
  Report Type: 
  Country: None (occurrence: None)
  Receive Date: 20090807
  Receipt Date: 20090731
  Transmission Date: 20100115
  Serious: Yes (Death, Life-Threatening, Hospitalization, Other)
  Sender: FDA-Public Use
  Company Number: FR-BAYER-200926513GPV

PATIENT
  Age: 80 Year
  Sex: Male

DRUGS (12)
  1. CIFLOX [Suspect]
     Indication: PROSTATITIS
     Dosage: UNIT DOSE: 250 MG
     Route: 048
     Dates: start: 20090606, end: 20090618
  2. TRUVADA [Suspect]
     Indication: HIV INFECTION
     Route: 048
     Dates: start: 20060922, end: 20090615
  3. TARGOCID [Suspect]
     Indication: PNEUMONIA ASPIRATION
     Dosage: 1 INJECTION (400MG) EVERY 3 DAYS
     Route: 042
     Dates: start: 20090619, end: 20090627
  4. TARGOCID [Suspect]
     Route: 042
     Dates: start: 20090629, end: 20090707
  5. TARGOCID [Suspect]
     Route: 042
     Dates: start: 20090627, end: 20090629
  6. TAZOCILLINE [Suspect]
     Indication: URINARY TRACT INFECTION
     Route: 042
     Dates: start: 20090619
  7. TAZOCILLINE [Suspect]
     Dosage: TOTAL DAILY DOSE: 12 G
     Route: 042
     Dates: start: 20090627, end: 20090707
  8. NORVIR [Concomitant]
     Indication: HIV INFECTION
     Route: 065
     Dates: end: 20090618
  9. REYATAZ [Concomitant]
     Indication: HIV INFECTION
     Dosage: UNIT DOSE: 150 MG
     Route: 065
     Dates: end: 20090618
  10. AMAREL [Concomitant]
     Indication: DIABETES MELLITUS
     Route: 065
     Dates: end: 20090618
  11. COMBIVIR [Concomitant]
     Indication: HIV INFECTION
     Route: 065
     Dates: end: 20090707
  12. TRANSFUSION [Concomitant]
     Dates: start: 20090702

REACTIONS (12)
  - ACUTE RESPIRATORY DISTRESS SYNDROME [None]
  - CACHEXIA [None]
  - CYANOSIS [None]
  - DECREASED APPETITE [None]
  - DYSPHAGIA [None]
  - HYPOTENSION [None]
  - LIVEDO RETICULARIS [None]
  - PYREXIA [None]
  - REFLUX OESOPHAGITIS [None]
  - RENAL FAILURE [None]
  - RENAL FAILURE CHRONIC [None]
  - TACHYPNOEA [None]
